FAERS Safety Report 5663037-0 (Version None)
Quarter: 2008Q1

REPORT INFORMATION
  Report Type: 
  Country: None (occurrence: None)
  Receive Date: 20080313
  Receipt Date: 20080302
  Transmission Date: 20080703
  Serious: Yes (Other)
  Sender: FDA-Public Use
  Company Number: US-PFIZER INC-2008019884

PATIENT
  Sex: Male

DRUGS (2)
  1. LIPITOR [Suspect]
  2. POTASSIUM CHLORIDE [Concomitant]

REACTIONS (7)
  - BACK PAIN [None]
  - BEDRIDDEN [None]
  - HEPATIC FUNCTION ABNORMAL [None]
  - HEPATITIS [None]
  - MEDICATION RESIDUE [None]
  - MYALGIA [None]
  - PAIN [None]
